FAERS Safety Report 8630470 (Version 5)
Quarter: 2013Q1

REPORT INFORMATION
  Report Type: Spontaneous
  Country: GB (occurrence: GB)
  Receive Date: 20120622
  Receipt Date: 20130207
  Transmission Date: 20140127
  Serious: Yes (Death, Hospitalization, Other)
  Sender: FDA-Public Use
  Company Number: GB-ROCHE-1080781

PATIENT
  Age: 74 Year
  Sex: Female

DRUGS (3)
  1. LUCENTIS [Suspect]
     Indication: PRODUCT USED FOR UNKNOWN INDICATION
     Route: 050
  2. ASPIRIN [Concomitant]
     Route: 065
  3. AMITRIPTYLINE [Concomitant]
     Route: 065

REACTIONS (5)
  - Breast cancer metastatic [Fatal]
  - Fall [Unknown]
  - Humerus fracture [Unknown]
  - Atrial fibrillation [Unknown]
  - Hypertension [Unknown]
